FAERS Safety Report 16061043 (Version 1)
Quarter: 2019Q1

REPORT INFORMATION
  Report Type: Spontaneous
  Country: US (occurrence: US)
  Receive Date: 20190312
  Receipt Date: 20190312
  Transmission Date: 20190418
  Serious: No
  Sender: FDA-Public Use
  Company Number: US-ROCHE-2116560

PATIENT
  Age: 20 Year
  Sex: Female

DRUGS (2)
  1. BEVACIZUMAB. [Suspect]
     Active Substance: BEVACIZUMAB
     Indication: ANAPLASTIC ASTROCYTOMA
     Dosage: CUMULATIVE DOSE OF BEVACIZUMAB = 240 MG/KG
     Route: 065
  2. TEMOZOLOMIDE. [Concomitant]
     Active Substance: TEMOZOLOMIDE
     Dosage: CUMULATIVE DOSE OF TEMOZOLOMIDE = 15.78 GM/M2
     Route: 065

REACTIONS (2)
  - Proteinuria [Unknown]
  - Hypertension [Unknown]
